FAERS Safety Report 22640221 (Version 12)
Quarter: 2024Q3

REPORT INFORMATION
  Report Type: Spontaneous
  Country: CA (occurrence: CA)
  Receive Date: 20230626
  Receipt Date: 20240722
  Transmission Date: 20241017
  Serious: Yes (Other)
  Sender: CELLTRION
  Company Number: CA-CELLTRION INC.-2023CA012739

PATIENT

DRUGS (16)
  1. INFLECTRA [Suspect]
     Active Substance: INFLIXIMAB-DYYB
     Indication: Colitis ulcerative
     Dosage: 5 MG/KG, INDUCTION W 0,2,6 THEN Q8 WEEKS
     Route: 042
     Dates: start: 20230601, end: 20230601
  2. INFLECTRA [Suspect]
     Active Substance: INFLIXIMAB-DYYB
     Dosage: 465 MG, EVERY 8 WEEKS (5MG/KG, INDUCTION W0,2,6 THEN Q8 WEEKS)
     Route: 042
     Dates: start: 20230615
  3. INFLECTRA [Suspect]
     Active Substance: INFLIXIMAB-DYYB
     Dosage: 5 MG/KG REINDUCTION W0,2,6 THEN Q8 WEEKS (460 MG, 4 WEEKS 1 DAY AFTER LAST TREATMENT)
     Route: 042
     Dates: start: 20230630
  4. INFLECTRA [Suspect]
     Active Substance: INFLIXIMAB-DYYB
     Dosage: 5 MG/KG REINDUCTION W0,2,6 THEN Q8 WEEKS (460 MG, 4 WEEKS 1 DAY AFTER LAST TREATMENT)
     Route: 042
     Dates: start: 20230630
  5. INFLECTRA [Suspect]
     Active Substance: INFLIXIMAB-DYYB
     Dosage: 5 MG/KG REINDUCTION W0,2,6 THEN Q8 WEEKS (460 MG, 4 WEEKS 1 DAY AFTER LAST TREATMENT)
     Route: 042
     Dates: start: 20230630
  6. INFLECTRA [Suspect]
     Active Substance: INFLIXIMAB-DYYB
     Dosage: 5 MG/KG REINDUCTION W0,2,6 THEN Q8 WEEKS
     Route: 042
     Dates: start: 20230808
  7. INFLECTRA [Suspect]
     Active Substance: INFLIXIMAB-DYYB
     Dosage: 5 MG/KG REINDUCTION W0,2,6 THEN Q8 WEEKS (490MG, 8 WEEKS)
     Route: 042
     Dates: start: 20231003
  8. INFLECTRA [Suspect]
     Active Substance: INFLIXIMAB-DYYB
     Dosage: 5 MG/KG REINDUCTION W0,2,6 THEN Q8 WEEKS (500MG AFTER 8 WEEKS)
     Route: 042
     Dates: start: 20231128
  9. INFLECTRA [Suspect]
     Active Substance: INFLIXIMAB-DYYB
     Dosage: 510 MG, 8 WEEKS
     Route: 042
     Dates: start: 20240123
  10. INFLECTRA [Suspect]
     Active Substance: INFLIXIMAB-DYYB
     Dosage: 5 MG/KG REINDUCTION W0,2,6 THEN Q8 WEEKS (505MG EVERY 8 WEEKS)
     Route: 042
     Dates: start: 20240319
  11. INFLECTRA [Suspect]
     Active Substance: INFLIXIMAB-DYYB
     Dosage: 5 MG/KG, REINDUCTION W0,2,6 THEN Q8 WEEKS (507.5 MG 8 WEEKS)
     Route: 042
     Dates: start: 20240514
  12. INFLECTRA [Suspect]
     Active Substance: INFLIXIMAB-DYYB
     Dosage: 5 MG/KG, REINDUCTION W0,2,6 THEN Q8 WEEKS (507.5 MG 8 WEEKS)
     Route: 042
     Dates: start: 20240514
  13. INFLECTRA [Suspect]
     Active Substance: INFLIXIMAB-DYYB
     Dosage: 505 MG, EVERY 8 WEEKS (5 MG/KG, REINDUCTION W0,2,6 THEN Q8 WEEKS)
     Route: 042
     Dates: start: 20240709
  14. ACETAMINOPHEN [Concomitant]
     Active Substance: ACETAMINOPHEN
     Indication: Premedication
     Dosage: 650 MG
     Route: 048
     Dates: start: 20230615, end: 20230615
  15. CORTISONE [Concomitant]
     Active Substance: CORTISONE
     Dosage: UNK (FOR A PERIOD OF 2 MONTHS)
  16. PREDNISONE [Concomitant]
     Active Substance: PREDNISONE
     Dosage: UNK

REACTIONS (16)
  - Hot flush [Unknown]
  - Body temperature increased [Recovered/Resolved]
  - Constipation [Not Recovered/Not Resolved]
  - Condition aggravated [Recovered/Resolved]
  - Cataract [Unknown]
  - Sunburn [Unknown]
  - Erythema [Not Recovered/Not Resolved]
  - Peripheral swelling [Unknown]
  - Therapeutic response shortened [Unknown]
  - Anal incontinence [Unknown]
  - Off label use [Unknown]
  - Blood pressure diastolic decreased [Recovered/Resolved]
  - Pyrexia [Recovered/Resolved]
  - Body temperature increased [Unknown]
  - Flatulence [Unknown]
  - Condition aggravated [Recovered/Resolved]

NARRATIVE: CASE EVENT DATE: 20230101
